FAERS Safety Report 23523668 (Version 1)
Quarter: 2024Q1

REPORT INFORMATION
  Report Type: Spontaneous
  Country: US (occurrence: US)
  Receive Date: 20240214
  Receipt Date: 20240214
  Transmission Date: 20240409
  Serious: No
  Sender: FDA-Public Use
  Company Number: US-BRISTOL-MYERS SQUIBB COMPANY-2024-024258

PATIENT
  Age: 65 Year
  Sex: Female
  Weight: 83.46 kg

DRUGS (1)
  1. REVLIMID [Suspect]
     Active Substance: LENALIDOMIDE
     Indication: Plasma cell myeloma
     Dosage: DAILY X 28 DAYS
     Route: 048
     Dates: start: 20210112

REACTIONS (1)
  - Haemoglobin decreased [Not Recovered/Not Resolved]
